FAERS Safety Report 8970779 (Version 1)
Quarter: 2012Q4

REPORT INFORMATION
  Report Type: 
  Country: CH (occurrence: CH)
  Receive Date: 20121218
  Receipt Date: 20121218
  Transmission Date: 20130627
  Serious: Yes (Hospitalization, Other)
  Sender: FDA-Public Use
  Company Number: CH-PFIZER INC-2012305606

PATIENT
  Age: 70 Year
  Sex: Female

DRUGS (12)
  1. XANAX [Suspect]
     Dosage: 1 mg, 3x/day
     Route: 048
  2. TEMESTA [Suspect]
     Dosage: 2.5 mg, 4x/day maximal
     Route: 048
  3. HALCION [Suspect]
     Dosage: 0.25 mg, 1x/day
     Route: 048
  4. EXFORGE HCT [Suspect]
     Indication: ESSENTIAL HYPERTENSION
     Dosage: 5mg / 25mg / 160mg, 1x/day
     Route: 048
  5. CIPRALEX [Suspect]
     Dosage: 2x 10mg 1x/day
     Route: 048
  6. SIRDALUD [Suspect]
     Dosage: 4 mg, 1x/day
     Route: 048
  7. RIVOTRIL [Suspect]
     Dosage: 2x 2mg, 1x/day
     Route: 048
  8. SEROQUEL [Suspect]
     Dosage: 1/2 300mg, 1x/day
     Route: 048
  9. ASPIRIN CARDIO [Concomitant]
     Dosage: 100 mg, weekly (monday)
     Route: 048
  10. MAG 2 FORTE [Concomitant]
     Dosage: UNK , 2x/day
     Route: 048
  11. OMEPRAZOLE [Concomitant]
     Dosage: 40 mg, 2x/day
     Route: 048
  12. MOVICOL [Concomitant]
     Indication: LAXATIVE SUPPORTIVE CARE
     Dosage: UNK, 2x/day

REACTIONS (8)
  - Fall [Recovering/Resolving]
  - Spinal fracture [Unknown]
  - Back pain [Unknown]
  - Muscular weakness [Unknown]
  - Balance disorder [Unknown]
  - Electrocardiogram QT prolonged [Recovered/Resolved]
  - Hypokalaemia [Recovered/Resolved]
  - Hyponatraemia [Recovered/Resolved]
